FAERS Safety Report 6107931-5 (Version None)
Quarter: 2009Q1

REPORT INFORMATION
  Report Type: 
  Country: None (occurrence: None)
  Receive Date: 20090309
  Receipt Date: 20090226
  Transmission Date: 20090719
  Serious: Yes (Other)
  Sender: FDA-Public Use
  Company Number: FR-AVENTIS-200910789FR

PATIENT
  Age: 71 Year
  Sex: Female

DRUGS (2)
  1. ARAVA [Suspect]
     Route: 048
     Dates: start: 20081126, end: 20090113
  2. CRESTOR [Concomitant]

REACTIONS (4)
  - ALANINE AMINOTRANSFERASE INCREASED [None]
  - CYTOLYTIC HEPATITIS [None]
  - HEPATOCELLULAR INJURY [None]
  - INTENTIONAL DRUG MISUSE [None]
